FAERS Safety Report 9041607 (Version 1)
Quarter: 2013Q1

REPORT INFORMATION
  Report Type: Spontaneous
  Country: IN (occurrence: IN)
  Receive Date: 20130129
  Receipt Date: 20130129
  Transmission Date: 20140127
  Serious: Yes (Hospitalization)
  Sender: FDA-Public Use
  Company Number: IN-BAXTER-2012BAX000140

PATIENT
  Age: 60 Year
  Sex: Male

DRUGS (3)
  1. DIANEAL PD-2 PERITONEAL DIALYSIS SOLUTION WITH 1.5 PERCENT DEXTROSE [Suspect]
     Indication: PERITONEAL DIALYSIS
     Route: 033
     Dates: start: 20120310
  2. DIANEAL PD-2 PERITONEAL DIALYSIS SOLUTION WITH 1.5 PERCENT DEXTROSE [Suspect]
     Dates: start: 20120310
  3. DIANEAL PD-2 PERITONEAL DIALISIS SOLUTION ULTRABAG WITH 2.5% DEXTROSE [Suspect]
     Indication: PERITONEAL DIALYSIS
     Route: 033
     Dates: start: 20120310

REACTIONS (1)
  - Peritonitis [Recovering/Resolving]
